FAERS Safety Report 10641534 (Version 1)
Quarter: 2014Q4

REPORT INFORMATION
  Report Type: Other
  Country: DE (occurrence: DE)
  Receive Date: 20141209
  Receipt Date: 20141209
  Transmission Date: 20150529
  Serious: Yes (Other)
  Sender: FDA-Public Use
  Company Number: DE-MYLANLABS-2014M1012415

PATIENT

DRUGS (4)
  1. AMITRIPTYLIN [Suspect]
     Active Substance: AMITRIPTYLINE
     Indication: POSTPARTUM DEPRESSION
     Dosage: 75 [MG/D ]/ 22. -29.7. 25 MG; 24-25.7. 50 MG; 26.-31.7. 75 MG
     Route: 063
  2. THYRONAJOD [Concomitant]
     Active Substance: LEVOTHYROXINE SODIUM\POTASSIUM IODIDE
     Indication: HYPOTHYROIDISM
     Dosage: 100 [?G ]/ PROBABLY  FURTHER INTAKE
     Route: 063
  3. SERTRALINE [Concomitant]
     Active Substance: SERTRALINE HYDROCHLORIDE
     Indication: POSTPARTUM DEPRESSION
     Dosage: 25 [MG/D ]/ 18.7. UNTIL 21.7.2014
     Route: 063
  4. TRIMIPRAMINE [Concomitant]
     Active Substance: TRIMIPRAMINE
     Indication: POSTPARTUM DEPRESSION
     Dosage: 25 [MG/D ]
     Route: 063

REACTIONS (3)
  - Exposure during breast feeding [Unknown]
  - Respiratory distress [Recovered/Resolved]
  - Myoclonus [Recovered/Resolved]
